FAERS Safety Report 13509802 (Version 2)
Quarter: 2019Q1

REPORT INFORMATION
  Report Type: Report from Study
  Country: US (occurrence: US)
  Receive Date: 20170503
  Receipt Date: 20190110
  Transmission Date: 20190417
  Serious: No
  Sender: FDA-Public Use
  Company Number: US-SA-2017SA043934

PATIENT
  Age: 74 Year
  Sex: Female

DRUGS (4)
  1. ALIROCUMAB [Suspect]
     Active Substance: ALIROCUMAB
     Dosage: 75 MG, QOW
     Route: 058
     Dates: start: 2018
  2. ALIROCUMAB [Suspect]
     Active Substance: ALIROCUMAB
     Indication: BLOOD CHOLESTEROL
     Dosage: 75 MG,QOW
     Route: 058
     Dates: start: 20170208, end: 20170208
  3. ALIROCUMAB [Suspect]
     Active Substance: ALIROCUMAB
     Dosage: 75 MG,QOW
     Route: 058
     Dates: start: 20170215, end: 20170215
  4. ALIROCUMAB [Suspect]
     Active Substance: ALIROCUMAB
     Dosage: UNK UNK,QOW
     Route: 058
     Dates: start: 2017

REACTIONS (13)
  - Feeling hot [Not Recovered/Not Resolved]
  - Tooth fracture [Not Recovered/Not Resolved]
  - Muscle strain [Unknown]
  - Injection site pain [Unknown]
  - Sinus congestion [Not Recovered/Not Resolved]
  - Tooth disorder [Not Recovered/Not Resolved]
  - Hypoaesthesia [Unknown]
  - Feeling cold [Not Recovered/Not Resolved]
  - Condition aggravated [Not Recovered/Not Resolved]
  - Influenza like illness [Not Recovered/Not Resolved]
  - Product use issue [Unknown]
  - Secretion discharge [Not Recovered/Not Resolved]
  - Injection site swelling [Unknown]

NARRATIVE: CASE EVENT DATE: 2017
